FAERS Safety Report 9835385 (Version 1)
Quarter: 2014Q1

REPORT INFORMATION
  Report Type: Report from Study
  Country: AU (occurrence: AU)
  Receive Date: 20140122
  Receipt Date: 20140122
  Transmission Date: 20141002
  Serious: Yes (Death)
  Sender: FDA-Public Use
  Company Number: AU-PFIZER INC-2014012909

PATIENT
  Age: 59 Year
  Sex: Female

DRUGS (8)
  1. IBUPROFEN [Suspect]
  2. OXAZEPAM [Suspect]
  3. DULOXETINE [Suspect]
  4. DIAZEPAM [Suspect]
  5. PARACETAMOL [Suspect]
  6. PROPRANOLOL [Suspect]
  7. CODEINE [Suspect]
  8. ETHANOL [Concomitant]
     Dosage: UNK

REACTIONS (2)
  - Toxicity to various agents [Fatal]
  - Completed suicide [Fatal]
